FAERS Safety Report 20280110 (Version 2)
Quarter: 2022Q1

REPORT INFORMATION
  Report Type: Spontaneous
  Country: GR (occurrence: GR)
  Receive Date: 20220103
  Receipt Date: 20220111
  Transmission Date: 20220423
  Serious: Yes (Other)
  Sender: FDA-Public Use
  Company Number: GR-BRAINTREE LABORATORIES, INC.-2021BTE01094

PATIENT
  Age: 59 Year
  Sex: Female
  Weight: 72 kg

DRUGS (4)
  1. MAGNESIUM SULFATE\POTASSIUM SULFATE\SODIUM SULFATE [Suspect]
     Active Substance: MAGNESIUM SULFATE\POTASSIUM SULFATE\SODIUM SULFATE
     Indication: Colonoscopy
     Dosage: 2 BOTTLES (2 DOSAGE FORMS, 12 HR)
     Route: 048
     Dates: start: 20211221, end: 20211221
  2. INSULIN NOS [Concomitant]
     Active Substance: INSULIN NOS
     Indication: Blood glucose abnormal
  3. DIOVAN [Concomitant]
     Active Substance: VALSARTAN
     Indication: Blood pressure abnormal
  4. LEVOTHYROXINE [Concomitant]
     Active Substance: LEVOTHYROXINE
     Indication: Thyroid disorder

REACTIONS (7)
  - Fall [Recovered/Resolved]
  - Blindness transient [Recovered/Resolved]
  - Dizziness [Recovered/Resolved]
  - Blood pressure decreased [Recovered/Resolved]
  - Diarrhoea [Recovered/Resolved]
  - Emotional distress [Unknown]
  - Constipation [Not Recovered/Not Resolved]

NARRATIVE: CASE EVENT DATE: 20211221
